FAERS Safety Report 24607760 (Version 1)
Quarter: 2024Q4

REPORT INFORMATION
  Report Type: Spontaneous
  Country: BE (occurrence: BE)
  Receive Date: 20241112
  Receipt Date: 20241112
  Transmission Date: 20250115
  Serious: Yes (Death, Life-Threatening, Hospitalization)
  Sender: ACCORD
  Company Number: BE-Accord-455440

PATIENT
  Age: 66 Year
  Sex: Female

DRUGS (30)
  1. CAPECITABINE [Suspect]
     Active Substance: CAPECITABINE
     Indication: Mixed adenoneuroendocrine carcinoma
     Dosage: 625 MG/M2
     Dates: start: 202209
  2. TEMOZOLOMIDE [Suspect]
     Active Substance: TEMOZOLOMIDE
     Indication: Mixed adenoneuroendocrine carcinoma
     Dosage: 100 MG/M2
     Dates: start: 202209
  3. EVEROLIMUS [Suspect]
     Active Substance: EVEROLIMUS
     Indication: Mixed adenoneuroendocrine carcinoma
     Dosage: 5 MG A DAY
     Dates: start: 202211
  4. FLUOROURACIL [Concomitant]
     Active Substance: FLUOROURACIL
     Indication: Mixed adenoneuroendocrine carcinoma
     Dosage: 2,400 MG/M2 EVERY 3 WEEKS; FIVE CYCLES
     Dates: start: 202302, end: 2023
  5. IRINOTECAN [Concomitant]
     Active Substance: IRINOTECAN
     Indication: Mixed adenoneuroendocrine carcinoma
     Dosage: 180 MG/M2 EVERY 3 WEEKS; FIVE CYCLES
     Dates: start: 202302, end: 2023
  6. EVEROLIMUS [Suspect]
     Active Substance: EVEROLIMUS
     Indication: Metastases to lymph nodes
     Dosage: 5 MG A DAY
     Dates: start: 202211
  7. FLUOROURACIL [Concomitant]
     Active Substance: FLUOROURACIL
     Indication: Metastases to lymph nodes
     Dosage: 2,400 MG/M2 EVERY 3 WEEKS; FIVE CYCLES
     Dates: start: 202302, end: 2023
  8. IRINOTECAN [Concomitant]
     Active Substance: IRINOTECAN
     Indication: Metastases to lymph nodes
     Dosage: 180 MG/M2 EVERY 3 WEEKS; FIVE CYCLES
     Dates: start: 202302, end: 2023
  9. CAPECITABINE [Suspect]
     Active Substance: CAPECITABINE
     Indication: Metastases to lung
     Dosage: 625 MG/M2
     Dates: start: 202209
  10. CAPECITABINE [Suspect]
     Active Substance: CAPECITABINE
     Indication: Metastases to kidney
     Dosage: 625 MG/M2
     Dates: start: 202209
  11. CAPECITABINE [Suspect]
     Active Substance: CAPECITABINE
     Indication: Neuroendocrine carcinoma metastatic
     Dosage: 625 MG/M2
     Dates: start: 202209
  12. CAPECITABINE [Suspect]
     Active Substance: CAPECITABINE
     Indication: Metastases to lymph nodes
     Dosage: METRONOMIC
     Dates: start: 202306
  13. CAPECITABINE [Suspect]
     Active Substance: CAPECITABINE
     Indication: Metastases to lung
     Dosage: METRONOMIC
     Dates: start: 202306
  14. CAPECITABINE [Suspect]
     Active Substance: CAPECITABINE
     Indication: Metastases to kidney
     Dosage: METRONOMIC
     Dates: start: 202306
  15. CAPECITABINE [Suspect]
     Active Substance: CAPECITABINE
     Indication: Neuroendocrine carcinoma metastatic
     Dosage: METRONOMIC
     Dates: start: 202306
  16. TEMOZOLOMIDE [Suspect]
     Active Substance: TEMOZOLOMIDE
     Indication: Metastases to lung
     Dosage: 100 MG/M2
     Dates: start: 202209
  17. TEMOZOLOMIDE [Suspect]
     Active Substance: TEMOZOLOMIDE
     Indication: Metastases to kidney
     Dosage: 100 MG/M2
     Dates: start: 202209
  18. TEMOZOLOMIDE [Suspect]
     Active Substance: TEMOZOLOMIDE
     Indication: Neuroendocrine carcinoma metastatic
     Dosage: 100 MG/M2
     Dates: start: 202209
  19. EVEROLIMUS [Suspect]
     Active Substance: EVEROLIMUS
     Indication: Metastases to lung
     Dosage: 5 MG A DAY
     Dates: start: 202211
  20. EVEROLIMUS [Suspect]
     Active Substance: EVEROLIMUS
     Indication: Metastases to kidney
     Dosage: 5 MG A DAY
     Dates: start: 202211
  21. EVEROLIMUS [Suspect]
     Active Substance: EVEROLIMUS
     Indication: Neuroendocrine carcinoma metastatic
     Dosage: 5 MG A DAY
     Dates: start: 202211
  22. FLUOROURACIL [Concomitant]
     Active Substance: FLUOROURACIL
     Indication: Neuroendocrine carcinoma metastatic
     Dosage: 2,400 MG/M2 EVERY 3 WEEKS; FIVE CYCLES
     Dates: start: 202302, end: 2023
  23. FLUOROURACIL [Concomitant]
     Active Substance: FLUOROURACIL
     Indication: Metastases to lung
     Dosage: 2,400 MG/M2 EVERY 3 WEEKS; FIVE CYCLES
     Dates: start: 202302, end: 2023
  24. FLUOROURACIL [Concomitant]
     Active Substance: FLUOROURACIL
     Indication: Metastases to kidney
     Dosage: 2,400 MG/M2 EVERY 3 WEEKS; FIVE CYCLES
     Dates: start: 202302, end: 2023
  25. IRINOTECAN [Concomitant]
     Active Substance: IRINOTECAN
     Indication: Metastases to kidney
     Dosage: 180 MG/M2 EVERY 3 WEEKS; FIVE CYCLES
     Dates: start: 202302, end: 2023
  26. IRINOTECAN [Concomitant]
     Active Substance: IRINOTECAN
     Indication: Metastases to lung
     Dosage: 180 MG/M2 EVERY 3 WEEKS; FIVE CYCLES
     Dates: start: 202302, end: 2023
  27. IRINOTECAN [Concomitant]
     Active Substance: IRINOTECAN
     Indication: Neuroendocrine carcinoma metastatic
     Dosage: 180 MG/M2 EVERY 3 WEEKS; FIVE CYCLES
     Dates: start: 202302, end: 2023
  28. CAPECITABINE [Suspect]
     Active Substance: CAPECITABINE
     Indication: Mixed adenoneuroendocrine carcinoma
     Dosage: METRONOMIC
     Dates: start: 202306
  29. CAPECITABINE [Suspect]
     Active Substance: CAPECITABINE
     Indication: Metastases to lymph nodes
     Dosage: 625 MG/M2
     Dates: start: 202209
  30. TEMOZOLOMIDE [Suspect]
     Active Substance: TEMOZOLOMIDE
     Indication: Metastases to lymph nodes
     Dosage: 100 MG/M2
     Dates: start: 202209

REACTIONS (4)
  - Mixed adenoneuroendocrine carcinoma [Fatal]
  - Cushing^s syndrome [Unknown]
  - Neoplasm progression [Fatal]
  - Off label use [Unknown]

NARRATIVE: CASE EVENT DATE: 20230801
